FAERS Safety Report 16863190 (Version 4)
Quarter: 2023Q4

REPORT INFORMATION
  Report Type: Spontaneous
  Country: US (occurrence: US)
  Receive Date: 20190927
  Receipt Date: 20231220
  Transmission Date: 20240109
  Serious: Yes (Hospitalization, Other)
  Sender: FDA-Public Use
  Company Number: US-GILEAD-2019-0429518

PATIENT
  Age: 57 Year
  Sex: Male

DRUGS (62)
  1. TRUVADA [Suspect]
     Active Substance: EMTRICITABINE\TENOFOVIR DISOPROXIL FUMARATE
     Indication: HIV infection
     Dosage: UNK
     Route: 048
     Dates: start: 20131118, end: 20160510
  2. ATRIPLA [Suspect]
     Active Substance: EFAVIRENZ\EMTRICITABINE\TENOFOVIR DISOPROXIL FUMARATE
     Indication: HIV infection
     Dosage: UNK
     Route: 048
     Dates: start: 20070605, end: 20130510
  3. DESCOVY [Concomitant]
     Active Substance: EMTRICITABINE\TENOFOVIR ALAFENAMIDE FUMARATE
  4. SUSTIVA [Concomitant]
     Active Substance: EFAVIRENZ
     Indication: HIV infection
  5. TRIUMEQ [Concomitant]
     Active Substance: ABACAVIR SULFATE\DOLUTEGRAVIR SODIUM\LAMIVUDINE
     Indication: HIV infection
  6. TIVICAY [Concomitant]
     Active Substance: DOLUTEGRAVIR SODIUM
     Indication: HIV infection
  7. COMBIVIR [Concomitant]
     Active Substance: LAMIVUDINE\ZIDOVUDINE
     Indication: HIV infection
  8. CRIXIVAN [Concomitant]
     Active Substance: INDINAVIR SULFATE
     Indication: HIV infection
  9. ACETAMINOPHEN [Concomitant]
     Active Substance: ACETAMINOPHEN
     Indication: Pain
  10. ALBUTEROL SULFATE [Concomitant]
     Active Substance: ALBUTEROL SULFATE
     Indication: Dyspnoea
  11. ALCLOMETASONE [Concomitant]
     Active Substance: ALCLOMETASONE
     Indication: Rash
  12. AMLODIPINE [Concomitant]
     Active Substance: AMLODIPINE BESYLATE
     Indication: Blood pressure measurement
  13. AMOXICILLIN [Concomitant]
     Active Substance: AMOXICILLIN
     Indication: Infection
  14. ASPIRIN [Concomitant]
     Active Substance: ASPIRIN
     Indication: Anticoagulant therapy
  15. AVELOX [Concomitant]
     Active Substance: MOXIFLOXACIN HYDROCHLORIDE
     Indication: Infection
  16. AZELASTINE [Concomitant]
     Active Substance: AZELASTINE\AZELASTINE HYDROCHLORIDE
     Indication: Hypersensitivity
  17. AZITHROMYCIN [Concomitant]
     Active Substance: AZITHROMYCIN
     Indication: Infection
  18. BACLOFEN [Concomitant]
     Active Substance: BACLOFEN
     Indication: Pain
  19. BENZONATATE [Concomitant]
     Active Substance: BENZONATATE
     Indication: Cough
  20. CARVEDILOL [Concomitant]
     Active Substance: CARVEDILOL
     Indication: Blood pressure measurement
  21. CEPHALEXIN [Concomitant]
     Active Substance: CEPHALEXIN
     Indication: Bacterial infection
  22. CHOLECALCIFEROL [Concomitant]
     Active Substance: CHOLECALCIFEROL
     Indication: Vitamin D deficiency
  23. CICLOPIROX [Concomitant]
     Active Substance: CICLOPIROX\TOCOPHEROL
     Indication: Fungal infection
  24. CLARINEX [Concomitant]
     Active Substance: DESLORATADINE
     Indication: Hypersensitivity
  25. DIPHENHYDRAMINE [Concomitant]
     Active Substance: DIPHENHYDRAMINE
  26. DOXYCYCLINE [Concomitant]
     Active Substance: DOXYCYCLINE
     Indication: Bacterial infection
  27. DULOXETINE [Concomitant]
     Active Substance: DULOXETINE
     Indication: Anxiety
  28. ENDOCET [Concomitant]
     Active Substance: ACETAMINOPHEN\OXYCODONE HYDROCHLORIDE
  29. EZETIMIBE [Concomitant]
     Active Substance: EZETIMIBE
  30. FENTANYL [Concomitant]
     Active Substance: FENTANYL\FENTANYL CITRATE
  31. DICLOFENAC EPOLAMINE [Concomitant]
     Active Substance: DICLOFENAC EPOLAMINE
  32. HYDRALAZINE [Concomitant]
     Active Substance: HYDRALAZINE HYDROCHLORIDE
  33. HYDROCODONE [Concomitant]
     Active Substance: HYDROCODONE
  34. HYDROCORTISONE [Concomitant]
     Active Substance: HYDROCORTISONE
  35. HYDROMORPHONE [Concomitant]
     Active Substance: HYDROMORPHONE
  36. HYDROXYZINE [Concomitant]
     Active Substance: HYDROXYZINE HYDROCHLORIDE
  37. IBUPROFEN [Concomitant]
     Active Substance: IBUPROFEN
  38. ISONIAZID [Concomitant]
     Active Substance: ISONIAZID
  39. LEVOTHYROXINE [Concomitant]
     Active Substance: LEVOTHYROXINE
  40. LIDOCAINE [Concomitant]
     Active Substance: LIDOCAINE
  41. LOSARTAN [Concomitant]
     Active Substance: LOSARTAN
  42. LYRICA [Concomitant]
     Active Substance: PREGABALIN
  43. MOMETASONE [Concomitant]
     Active Substance: MOMETASONE
  44. NAPROXEN [Concomitant]
     Active Substance: NAPROXEN
  45. NYSTATIN [Concomitant]
     Active Substance: NYSTATIN
  46. ONDANSETRON [Concomitant]
     Active Substance: ONDANSETRON
  47. PANTOPRAZOLE [Concomitant]
     Active Substance: PANTOPRAZOLE
  48. PAROXETINE [Concomitant]
     Active Substance: PAROXETINE
  49. PHENYTOIN [Concomitant]
     Active Substance: PHENYTOIN
  50. ROSUVASTATIN [Concomitant]
     Active Substance: ROSUVASTATIN
  51. SIMVASTATIN [Concomitant]
     Active Substance: SIMVASTATIN
  52. TRAZODONE [Concomitant]
     Active Substance: TRAZODONE HYDROCHLORIDE
  53. SUCRALFATE [Concomitant]
     Active Substance: SUCRALFATE
  54. VARENICLINE [Concomitant]
     Active Substance: VARENICLINE
  55. WARFARIN [Concomitant]
     Active Substance: WARFARIN
  56. WELLBUTRIN [Concomitant]
     Active Substance: BUPROPION HYDROCHLORIDE
  57. XARELTO [Concomitant]
     Active Substance: RIVAROXABAN
  58. ZETIA [Concomitant]
     Active Substance: EZETIMIBE
  59. RITONAVIR [Concomitant]
     Active Substance: RITONAVIR
     Indication: HIV infection
  60. METOPROLOL [Concomitant]
     Active Substance: METOPROLOL
  61. KETAMINE [Concomitant]
     Active Substance: KETAMINE
  62. CETIRIZINE [Concomitant]
     Active Substance: CETIRIZINE HYDROCHLORIDE

REACTIONS (19)
  - Acute kidney injury [Not Recovered/Not Resolved]
  - Chronic kidney disease [Not Recovered/Not Resolved]
  - Loss of personal independence in daily activities [Not Recovered/Not Resolved]
  - Leg amputation [Unknown]
  - Quality of life decreased [Not Recovered/Not Resolved]
  - Fear [Not Recovered/Not Resolved]
  - Decreased activity [Not Recovered/Not Resolved]
  - Mobility decreased [Not Recovered/Not Resolved]
  - Pain [Not Recovered/Not Resolved]
  - Fatigue [Not Recovered/Not Resolved]
  - Emotional distress [Not Recovered/Not Resolved]
  - Anxiety [Not Recovered/Not Resolved]
  - Anhedonia [Not Recovered/Not Resolved]
  - Economic problem [Not Recovered/Not Resolved]
  - Depression [Not Recovered/Not Resolved]
  - Anaemia [Not Recovered/Not Resolved]
  - Hypercalcaemia [Not Recovered/Not Resolved]
  - Hyperparathyroidism [Not Recovered/Not Resolved]
  - Pollakiuria [Unknown]

NARRATIVE: CASE EVENT DATE: 20130101
